FAERS Safety Report 6977501-5 (Version None)
Quarter: 2010Q3

REPORT INFORMATION
  Report Type: 
  Country: None (occurrence: None)
  Receive Date: 20100910
  Receipt Date: 20100902
  Transmission Date: 20110219
  Serious: Yes (Life-Threatening, Hospitalization, Disabling)
  Sender: FDA-Public Use
  Company Number: FR-AMGEN-QUU436699

PATIENT
  Age: 17 Year
  Sex: Female

DRUGS (5)
  1. ENBREL [Suspect]
     Indication: JUVENILE ARTHRITIS
     Route: 058
     Dates: start: 20000101, end: 20080101
  2. ENBREL [Suspect]
     Route: 058
     Dates: start: 20090101
  3. ASPEGIC 1000 [Suspect]
     Indication: PRODUCT USED FOR UNKNOWN INDICATION
     Dosage: UNKNOWN
     Route: 048
     Dates: start: 20100502, end: 20100509
  4. ADVIL LIQUI-GELS [Suspect]
     Indication: PRODUCT USED FOR UNKNOWN INDICATION
     Dosage: UNKNOWN
     Route: 048
     Dates: start: 20100502, end: 20100509
  5. ACETAMINOPHEN [Concomitant]
     Dosage: UNKNOWN
     Route: 048
     Dates: start: 20100502

REACTIONS (15)
  - ACUTE RESPIRATORY DISTRESS SYNDROME [None]
  - AUTOIMMUNE THROMBOCYTOPENIA [None]
  - BACTERIAL SEPSIS [None]
  - DEHYDRATION [None]
  - DELUSION [None]
  - DISEASE PROGRESSION [None]
  - EPISTAXIS [None]
  - HYPOTENSION [None]
  - JUGULAR VEIN THROMBOSIS [None]
  - MULTI-ORGAN FAILURE [None]
  - MUSCLE ABSCESS [None]
  - PNEUMOCYSTIS JIROVECI PNEUMONIA [None]
  - PSOAS ABSCESS [None]
  - RENAL FAILURE ACUTE [None]
  - VASCULAR COMPLICATION ASSOCIATED WITH DEVICE [None]
